FAERS Safety Report 18098536 (Version 4)
Quarter: 2020Q3

REPORT INFORMATION
  Report Type: Report from Study
  Country: SI (occurrence: SI)
  Receive Date: 20200731
  Receipt Date: 20200930
  Transmission Date: 20201103
  Serious: Yes (Death, Hospitalization, Other)
  Sender: FDA-Public Use
  Company Number: SI-BAYER-2020-039259

PATIENT
  Age: 61 Year
  Sex: Male

DRUGS (3)
  1. STIVARGA [Suspect]
     Active Substance: REGORAFENIB
     Indication: COLORECTAL CANCER METASTATIC
     Dosage: 160 MG DAILY
     Dates: start: 2020, end: 2020
  2. STIVARGA [Suspect]
     Active Substance: REGORAFENIB
     Indication: COLORECTAL CANCER METASTATIC
     Dosage: 80 MG DAILY
     Dates: start: 20200226, end: 2020
  3. STIVARGA [Suspect]
     Active Substance: REGORAFENIB
     Indication: COLORECTAL CANCER METASTATIC
     Dosage: 120 MG DAILY
     Dates: start: 2020, end: 202007

REACTIONS (15)
  - Jaundice [Not Recovered/Not Resolved]
  - Oral pain [Recovering/Resolving]
  - Liver disorder [Not Recovered/Not Resolved]
  - Oropharyngeal pain [Not Recovered/Not Resolved]
  - Pyrexia [Recovered/Resolved]
  - Death [Fatal]
  - Palmar-plantar erythrodysaesthesia syndrome [Recovered/Resolved]
  - Hypertension [Recovered/Resolved]
  - Off label use [None]
  - Epistaxis [Recovered/Resolved]
  - Pyrexia [Not Recovered/Not Resolved]
  - Nasopharyngitis [Not Recovered/Not Resolved]
  - Constipation [Recovered/Resolved]
  - Malaise [Not Recovered/Not Resolved]
  - Sepsis [Unknown]

NARRATIVE: CASE EVENT DATE: 20200226
